FAERS Safety Report 23937229 (Version 1)
Quarter: 2024Q2

REPORT INFORMATION
  Report Type: Spontaneous
  Country: JP (occurrence: None)
  Receive Date: 20240604
  Receipt Date: 20240604
  Transmission Date: 20240715
  Serious: Yes (Other)
  Sender: FDA-Public Use
  Company Number: 2024A126519

PATIENT
  Age: 78 Year

DRUGS (1)
  1. TAGRISSO [Suspect]
     Active Substance: OSIMERTINIB
     Indication: Non-small cell lung cancer
     Route: 048
     Dates: start: 20240413, end: 2024

REACTIONS (10)
  - Thrombosis [Unknown]
  - Blood creatine phosphokinase increased [Unknown]
  - Oedema peripheral [Unknown]
  - Erythema [Recovering/Resolving]
  - Dry skin [Recovering/Resolving]
  - Hypoaesthesia [Unknown]
  - Skin ulcer [Unknown]
  - Skin discolouration [Unknown]
  - Onychoclasis [Unknown]
  - Muscle atrophy [Unknown]

NARRATIVE: CASE EVENT DATE: 20240101
